FAERS Safety Report 6040825-2 (Version None)
Quarter: 2009Q1

REPORT INFORMATION
  Report Type: 
  Country: None (occurrence: None)
  Receive Date: 20090116
  Receipt Date: 20080606
  Transmission Date: 20090719
  Serious: No
  Sender: FDA-Public Use
  Company Number: US-BRISTOL-MYERS SQUIBB COMPANY-14218903

PATIENT
  Age: 38 Year
  Sex: Female
  Weight: 66 kg

DRUGS (2)
  1. ABILIFY [Suspect]
     Indication: BIPOLAR DISORDER
  2. LEXAPRO [Concomitant]

REACTIONS (4)
  - MUSCLE TWITCHING [None]
  - SPEECH DISORDER [None]
  - TONGUE DISORDER [None]
  - VISION BLURRED [None]
